FAERS Safety Report 4610398-7 (Version None)
Quarter: 2005Q2

REPORT INFORMATION
  Report Type: 
  Country: None (occurrence: None)
  Receive Date: 20050301
  Receipt Date: 20041210
  Transmission Date: 20051028
  Serious: No
  Sender: FDA-Public Use
  Company Number: WAES0412USA01322

PATIENT
  Age: 62 Year
  Sex: Male

DRUGS (2)
  1. ZETIA [Suspect]
     Dosage: 10 MG/DAILY/PO
     Route: 048
     Dates: start: 20040701
  2. LEXAPRO [Concomitant]

REACTIONS (1)
  - HEART RATE INCREASED [None]
